FAERS Safety Report 19276308 (Version 15)
Quarter: 2022Q2

REPORT INFORMATION
  Report Type: Report from Study
  Country: IT (occurrence: IT)
  Receive Date: 20210520
  Receipt Date: 20220506
  Transmission Date: 20220720
  Serious: Yes (Other)
  Sender: FDA-Public Use
  Company Number: IT-CELLTRION INC.-2021IT006701

PATIENT

DRUGS (70)
  1. TRASTUZUMAB [Suspect]
     Active Substance: TRASTUZUMAB
     Indication: HER2 positive breast cancer
     Dosage: 2 UG/KG EVERY 1 WEEK; DATE OF MOST RECENT DOSE RECEIVED PRIOR TO THE EVENT ONSET: 15/DEC/2020
     Route: 042
     Dates: start: 20201215, end: 20210107
  2. TRASTUZUMAB [Suspect]
     Active Substance: TRASTUZUMAB
     Indication: HER2 positive breast cancer
     Route: 065
  3. TRASTUZUMAB [Suspect]
     Active Substance: TRASTUZUMAB
     Dosage: 560 MG EVERY 3 WEEKS
     Route: 041
     Dates: start: 20190314, end: 20190314
  4. TRASTUZUMAB [Suspect]
     Active Substance: TRASTUZUMAB
     Dosage: 6 UG/KG EVERY 3 WEEKS (MOST RECENT DOSE PRIOR TO 17/JUN/2021)
     Route: 041
     Dates: start: 20210113
  5. TRASTUZUMAB [Suspect]
     Active Substance: TRASTUZUMAB
     Dosage: 480 MG EVERY 3 WEEKS
     Route: 041
     Dates: start: 20190408, end: 20200311
  6. TRASTUZUMAB [Suspect]
     Active Substance: TRASTUZUMAB
     Dosage: 2 UG/KG EVERY 1 WEEK
     Route: 041
     Dates: start: 20201215, end: 20210107
  7. PACLITAXEL [Suspect]
     Active Substance: PACLITAXEL
     Indication: HER2 positive breast cancer
     Dosage: 130 MG, DATE OF MOST RECENT DOSE RECEIVED PRIOR TO THE EVENT ONSET: 17/JUN/2019
     Route: 042
     Dates: start: 20190314, end: 20190610
  8. PACLITAXEL [Suspect]
     Active Substance: PACLITAXEL
     Dosage: 90 MG (DATE OF MOST RECENT DOSE RECEIVED PRIOR TO THE EVENT ONSET:22/JUL/2019)
     Route: 042
     Dates: start: 20190617
  9. PACLITAXEL [Suspect]
     Active Substance: PACLITAXEL
     Indication: HER2 positive breast cancer
     Dosage: 130 MG (UNIT=NOT AVAILABLE)
     Route: 065
     Dates: start: 20190314, end: 20190610
  10. PERTUZUMAB [Suspect]
     Active Substance: PERTUZUMAB
     Indication: HER2 positive breast cancer
     Dosage: 840 MG, EVERY 3 WEEKS; DATE OF MOST RECENT DOSE RECEIVED PRIOR TO THE EVENT ONSET: 08/APR/2019
     Route: 042
     Dates: start: 20190314, end: 20190314
  11. PERTUZUMAB [Suspect]
     Active Substance: PERTUZUMAB
     Dosage: 420 MG EVERY 3 WEEKS (DATE OF MOST RECENT DOSE RECEIVED PRIOR TO THE EVENT ONSET: 11/MAR/2020)
     Route: 042
     Dates: start: 20190408
  12. PERTUZUMAB [Suspect]
     Active Substance: PERTUZUMAB
     Indication: HER2 positive breast cancer
     Dosage: 840 MILLIGRAM, Q3WK (UNIT=NOT AVAILABLE)
     Route: 042
     Dates: start: 20190314, end: 20190314
  13. PERTUZUMAB [Suspect]
     Active Substance: PERTUZUMAB
     Dosage: 840 MILLIGRAM, Q3WK
     Route: 042
     Dates: start: 20190408
  14. ADO-TRASTUZUMAB EMTANSINE [Suspect]
     Active Substance: ADO-TRASTUZUMAB EMTANSINE
     Indication: HER2 positive breast cancer
     Dosage: 3.6 UG/KG, EVERY 3 WEEKS; DATE OF MOST RECENT DOSE RECEIVED PRIOR TO THE EVENT ONSET: 04/NOV/2020
     Route: 042
     Dates: start: 20200506, end: 20201104
  15. ADO-TRASTUZUMAB EMTANSINE [Suspect]
     Active Substance: ADO-TRASTUZUMAB EMTANSINE
     Dosage: 3.6 UG/KG
     Route: 042
     Dates: start: 20201215
  16. ADO-TRASTUZUMAB EMTANSINE [Suspect]
     Active Substance: ADO-TRASTUZUMAB EMTANSINE
     Dosage: 3.6 UG/KG EVERY 3 WEEKS (DATE OF MOST RECENT DOSE RECEIVED PRIOR TO THE EVENT ONSET: 04/NOV/2020)
     Route: 042
     Dates: start: 20200506
  17. ADO-TRASTUZUMAB EMTANSINE [Suspect]
     Active Substance: ADO-TRASTUZUMAB EMTANSINE
     Indication: HER2 positive breast cancer
     Dosage: 3.6 MICROGRAM/KILOGRAM, Q3WK (UNIT=NOT AVAILABLE)
     Route: 042
     Dates: start: 20200506, end: 20201104
  18. ADO-TRASTUZUMAB EMTANSINE [Suspect]
     Active Substance: ADO-TRASTUZUMAB EMTANSINE
     Dosage: 3.6 MICROGRAM/KILOGRAM, Q3WK (UNIT=NOT AVAILABLE)
     Route: 065
     Dates: start: 20200506, end: 20201104
  19. ADO-TRASTUZUMAB EMTANSINE [Suspect]
     Active Substance: ADO-TRASTUZUMAB EMTANSINE
     Dosage: 3.6 MICROGRAM/KILOGRAM, Q3WK
     Dates: start: 20201104
  20. ADO-TRASTUZUMAB EMTANSINE [Suspect]
     Active Substance: ADO-TRASTUZUMAB EMTANSINE
     Dosage: 3.6 MICROGRAM/KILOGRAM
     Dates: end: 20201215
  21. EXEMESTANE [Suspect]
     Active Substance: EXEMESTANE
     Indication: HER2 positive breast cancer
     Dosage: 25 MG, QD; DATE OF MOST RECENT DOSE OF EXEMESTANE RECEIVED PRIOR TO THE EVENT ONSET: 22/APR/2020
     Route: 048
     Dates: start: 20190819, end: 20200422
  22. EXEMESTANE [Suspect]
     Active Substance: EXEMESTANE
     Dosage: 25 MG, QD
     Route: 065
     Dates: start: 20190819, end: 20200422
  23. EXEMESTANE [Suspect]
     Active Substance: EXEMESTANE
     Dosage: 25 MG QD
     Dates: start: 20200422
  24. EXEMESTANE [Suspect]
     Active Substance: EXEMESTANE
     Indication: HER2 positive breast cancer
     Dosage: 25 MILLIGRAM, QD
     Route: 065
     Dates: start: 20190819, end: 20200422
  25. IVABRADINE [Suspect]
     Active Substance: IVABRADINE
     Indication: Product used for unknown indication
     Dosage: 130 MILLIGRAM (UNIT=NOT AVAILABLE)
     Route: 042
     Dates: start: 20190314, end: 20190610
  26. IVABRADINE [Suspect]
     Active Substance: IVABRADINE
     Dosage: UNK (UNIT=NOT AVAILABLE)
     Route: 065
     Dates: start: 20151118
  27. IVABRADINE [Suspect]
     Active Substance: IVABRADINE
     Dosage: UNK UNIT=NOT AVAILABLE
     Route: 042
     Dates: start: 20151118
  28. IVABRADINE [Suspect]
     Active Substance: IVABRADINE
     Dosage: 840 MILLIGRAM, Q3WK (UNIT=NOT AVAILABLE)
     Route: 042
     Dates: start: 20190314, end: 20190314
  29. IVABRADINE [Suspect]
     Active Substance: IVABRADINE
     Dosage: 3.6 MICROGRAM/KILOGRAM, Q3WK (UNIT=NOT AVAILABLE)
     Route: 048
     Dates: start: 20200506, end: 20201104
  30. IVABRADINE [Suspect]
     Active Substance: IVABRADINE
     Dosage: 3.6 MICROGRAM/KILOGRAM, Q3WK (UNIT=NOT AVAILABLE)
     Route: 042
     Dates: start: 20200506, end: 20201104
  31. IVABRADINE [Suspect]
     Active Substance: IVABRADINE
     Dosage: 25 MILLIGRAM, QD (UNIT=NOT AVAILABLE)
     Route: 048
     Dates: start: 20190819, end: 20200422
  32. IVABRADINE [Suspect]
     Active Substance: IVABRADINE
     Dosage: UNK MILLIGRAM/SQ. METER (UNIT=NOT AVAILABLE)
     Route: 042
     Dates: start: 20201215
  33. IVABRADINE [Suspect]
     Active Substance: IVABRADINE
     Dosage: 25 MILLIGRAM, QD UNIT=AVAILABLE
     Route: 042
     Dates: start: 20201215, end: 20210107
  34. VINORELBINE TARTRATE [Suspect]
     Active Substance: VINORELBINE TARTRATE
     Indication: HER2 positive breast cancer
     Dosage: UNK MILLIGRAM/SQ. METER (UNIT=NOT AVAILABLE)
     Route: 065
     Dates: start: 20201215
  35. VINORELBINE TARTRATE [Suspect]
     Active Substance: VINORELBINE TARTRATE
     Indication: HER2 positive breast cancer
     Dosage: UNK MILLIGRAM/SQ. METER
     Route: 065
     Dates: start: 20201215
  36. VINORELBINE [Suspect]
     Active Substance: VINORELBINE TARTRATE
     Indication: HER2 positive breast cancer
     Dosage: 25 MG/M2 DAY 1, 8 Q21
     Route: 065
     Dates: start: 20201215, end: 20210617
  37. IVABRADINE [Suspect]
     Active Substance: IVABRADINE
     Indication: Product used for unknown indication
     Dosage: 840 MILLIGRAM, Q3WK
     Route: 042
     Dates: start: 20190314, end: 20190314
  38. IVABRADINE [Suspect]
     Active Substance: IVABRADINE
     Dosage: 25 MILLIGRAM, QD
     Route: 048
     Dates: start: 20190819, end: 20200422
  39. IVABRADINE [Suspect]
     Active Substance: IVABRADINE
     Dosage: 130 MILLIGRAM
     Route: 042
     Dates: start: 20190314, end: 20190610
  40. IVABRADINE [Suspect]
     Active Substance: IVABRADINE
     Dosage: 25 MG, QD
     Route: 042
     Dates: start: 20201215, end: 20210107
  41. IVABRADINE [Suspect]
     Active Substance: IVABRADINE
     Dosage: 3.6 MICROGRAM/KILOGRAM, Q3WK
     Route: 042
     Dates: start: 20200506, end: 20201104
  42. IVABRADINE [Suspect]
     Active Substance: IVABRADINE
     Dosage: UNK
     Route: 042
     Dates: start: 20151118
  43. BISOPROLOL [Concomitant]
     Active Substance: BISOPROLOL
     Indication: Product used for unknown indication
     Dosage: UNK
     Route: 065
     Dates: start: 20151118
  44. BISOPROLOL [Concomitant]
     Active Substance: BISOPROLOL
     Dosage: UNK
     Dates: start: 20200709
  45. BISOPROLOL [Concomitant]
     Active Substance: BISOPROLOL
     Dosage: 1.25 MG PRN (AS NEEDED)
     Route: 048
     Dates: start: 20151118
  46. CHOLECALCIFEROL [Concomitant]
     Active Substance: CHOLECALCIFEROL
     Indication: Product used for unknown indication
     Dosage: UNK
     Route: 065
  47. CHOLECALCIFEROL [Concomitant]
     Active Substance: CHOLECALCIFEROL
     Dosage: EVERY 1 MONTH
     Route: 048
  48. QUETIAPINE [Concomitant]
     Active Substance: QUETIAPINE
     Indication: Product used for unknown indication
     Dosage: 50 MG, EVERY 1 DAY
     Route: 048
  49. IVABRADINE [Concomitant]
     Active Substance: IVABRADINE
     Dosage: 7.5 MG EVERY 0.5 DAY
     Route: 048
     Dates: start: 20151118
  50. URSODIOL [Concomitant]
     Active Substance: URSODIOL
     Indication: Product used for unknown indication
     Dosage: 450 MG, EVERY 1 DAY
     Dates: start: 20200709, end: 20201125
  51. QUETIAPINE FUMARATE [Concomitant]
     Active Substance: QUETIAPINE FUMARATE
     Indication: Product used for unknown indication
     Dosage: UNK
  52. DEXAMETHASONE [Concomitant]
     Active Substance: DEXAMETHASONE
     Indication: Nausea
     Dosage: 2 MG
     Route: 048
     Dates: start: 20210830, end: 20210831
  53. DEXAMETHASONE [Concomitant]
     Active Substance: DEXAMETHASONE
     Dosage: 4 MG
     Route: 048
     Dates: start: 20210824, end: 20210829
  54. DEXAMETHASONE [Concomitant]
     Active Substance: DEXAMETHASONE
     Dosage: 8 MG
     Dates: start: 20210823, end: 20210823
  55. CLARITHROMYCIN [Concomitant]
     Active Substance: CLARITHROMYCIN
     Dosage: 500 MG, EVERY 1 DAY
     Route: 048
     Dates: start: 202010, end: 202011
  56. CYMBALTA [Concomitant]
     Active Substance: DULOXETINE HYDROCHLORIDE
     Dosage: 30 MG
     Route: 048
     Dates: end: 20190610
  57. RANITIDINE [Concomitant]
     Active Substance: RANITIDINE
     Dosage: 1.00 AMPULE SOLUTION EVERY 1 WEEK
     Route: 042
     Dates: start: 20190314, end: 20190722
  58. HEPARIN SODIUM [Concomitant]
     Active Substance: HEPARIN SODIUM
     Dosage: 2.00 AMPULE
     Route: 042
     Dates: start: 20190314, end: 20190722
  59. AMOXICILLIN [Concomitant]
     Active Substance: AMOXICILLIN
     Dosage: 1 GRAM EVERY 0.5 DAY
     Route: 048
     Dates: start: 202010, end: 202011
  60. ALIZAPRIDE [Concomitant]
     Active Substance: ALIZAPRIDE
     Dosage: 2.00 AMPULE EVERY 1 WEEK
     Route: 042
     Dates: start: 20190502, end: 20190722
  61. ALIZAPRIDE [Concomitant]
     Active Substance: ALIZAPRIDE
     Dosage: 100 MG EVERY 1 WEEK (OTHER DAY 1 AND 8, Q21)
     Route: 042
     Dates: start: 20201216
  62. CHLORPHENIRAMINE MALEATE [Concomitant]
     Active Substance: CHLORPHENIRAMINE MALEATE
     Dosage: EVERY 1 WEEK
     Route: 042
     Dates: start: 20190314, end: 20190722
  63. HYDROCORTISONE [Concomitant]
     Active Substance: HYDROCORTISONE
     Dosage: 250 MG, 1/WEEK
     Route: 042
     Dates: start: 20190314, end: 20190722
  64. ONDANSETRON [Concomitant]
     Active Substance: ONDANSETRON
     Dosage: 8 MG, EVERY 1 WEEK
     Route: 042
     Dates: start: 20190314, end: 20190424
  65. PYLERA [Concomitant]
     Active Substance: BISMUTH SUBCITRATE POTASSIUM\METRONIDAZOLE\TETRACYCLINE HYDROCHLORIDE
     Dosage: 3 DF EVERY 0.25 DAY
     Route: 048
     Dates: start: 20200422, end: 20200501
  66. PREDNISONE [Concomitant]
     Active Substance: PREDNISONE
     Dosage: 12.5 MG, EVERY 1 DAY
     Route: 048
     Dates: start: 20200709, end: 20200723
  67. ESOMEPRAZOLE [Concomitant]
     Active Substance: ESOMEPRAZOLE
     Indication: Oesophagitis
     Dosage: 40 MG EVERY 0.5 DAY
     Route: 048
     Dates: start: 20200422, end: 20200501
  68. ESOMEPRAZOLE [Concomitant]
     Active Substance: ESOMEPRAZOLE
     Dosage: 40 MG EVERY 1 DAY
     Route: 048
     Dates: start: 20200502, end: 20200701
  69. ESOMEPRAZOLE [Concomitant]
     Active Substance: ESOMEPRAZOLE
     Dosage: 20 MG QOD (EVERY OTHER DAY)
     Route: 048
     Dates: start: 202011, end: 202011
  70. ESOMEPRAZOLE [Concomitant]
     Active Substance: ESOMEPRAZOLE
     Dosage: 20 MG EVERY 1 DAY
     Route: 048
     Dates: start: 202010, end: 202011

REACTIONS (3)
  - Neutropenia [Recovered/Resolved]
  - Off label use [Unknown]
  - Underdose [Unknown]

NARRATIVE: CASE EVENT DATE: 20190314
